FAERS Safety Report 4525971-4 (Version None)
Quarter: 2004Q4

REPORT INFORMATION
  Report Type: 
  Country: None (occurrence: None)
  Receive Date: 20041207
  Receipt Date: 20041117
  Transmission Date: 20050328
  Serious: Yes (Other)
  Sender: FDA-Public Use
  Company Number: B0358496A

PATIENT
  Age: 96 Year
  Sex: Female

DRUGS (11)
  1. LANOXIN [Suspect]
  2. METFORMIN HCL [Suspect]
  3. WARFARIN SODIUM [Concomitant]
  4. FRUSEMIDE [Concomitant]
  5. FOSINOPRIL [Concomitant]
  6. AMLODIPINE [Concomitant]
  7. SOTALOL HCL [Concomitant]
  8. MAGNESIUM GLUCEPTATE [Concomitant]
  9. POTASSIUM SALT [Concomitant]
  10. NITROFURANTOIN [Concomitant]
  11. LOPERAMIDE HYDROCHLORIDE [Concomitant]

REACTIONS (6)
  - DIARRHOEA [None]
  - DRUG INTERACTION [None]
  - DRUG LEVEL INCREASED [None]
  - EMOTIONAL DISTRESS [None]
  - HYPOMAGNESAEMIA [None]
  - RENAL IMPAIRMENT [None]
